FAERS Safety Report 7198216-7 (Version None)
Quarter: 2010Q4

REPORT INFORMATION
  Report Type: 
  Country: None (occurrence: None)
  Receive Date: 20101223
  Receipt Date: 20101223
  Transmission Date: 20110411
  Serious: Yes (Other)
  Sender: FDA-Public Use
  Company Number: None

PATIENT
  Sex: Male

DRUGS (1)
  1. CHEWABLE HI-POT MULTI-VIT WAFER 1 WAFER GARDEN STATE NUTRITIONAL [Suspect]
     Indication: ROUTINE HEALTH MAINTENANCE
     Dosage: 1 WAFER DAILY PO
     Route: 048
     Dates: start: 20101104, end: 20101104

REACTIONS (2)
  - DIARRHOEA [None]
  - VOMITING [None]
